FAERS Safety Report 10042079 (Version 1)
Quarter: 2014Q1

REPORT INFORMATION
  Report Type: Spontaneous
  Country: IT (occurrence: IT)
  Receive Date: 20140327
  Receipt Date: 20140327
  Transmission Date: 20141002
  Serious: Yes (Hospitalization)
  Sender: FDA-Public Use
  Company Number: PHHY2014IT035854

PATIENT
  Age: 50 Year
  Sex: Female

DRUGS (2)
  1. GILENYA [Suspect]
     Indication: MULTIPLE SCLEROSIS
     Dosage: 0.5 MG, DAILY
     Route: 048
     Dates: start: 20101103, end: 20140311
  2. EXPOSE [Concomitant]
     Indication: MUSCLE SPASTICITY
     Route: 048
     Dates: start: 20140106, end: 20140311

REACTIONS (1)
  - Tubular breast carcinoma [Unknown]
